FAERS Safety Report 13924388 (Version 1)
Quarter: 2017Q3

REPORT INFORMATION
  Report Type: Spontaneous
  Country: GB (occurrence: GB)
  Receive Date: 20170831
  Receipt Date: 20170831
  Transmission Date: 20171127
  Serious: Yes (Disabling)
  Sender: FDA-Public Use
  Company Number: None

PATIENT
  Sex: Female
  Weight: 107 kg

DRUGS (11)
  1. ARIPIPRAZOLE. [Concomitant]
     Active Substance: ARIPIPRAZOLE
  2. BENDROFLUMETHIAZIDE [Concomitant]
     Active Substance: BENDROFLUMETHIAZIDE
  3. PARACETAMOL [Concomitant]
     Active Substance: ACETAMINOPHEN
  4. PROPRANOLOL [Concomitant]
     Active Substance: PROPRANOLOL HYDROCHLORIDE
  5. FLUOXETINE [Concomitant]
     Active Substance: FLUOXETINE HYDROCHLORIDE
  6. GAVISCON [Concomitant]
     Active Substance: ALUMINUM HYDROXIDE\MAGNESIUM CARBONATE
  7. LORATIDINE [Concomitant]
     Active Substance: LORATADINE
  8. VICTOZA [Suspect]
     Active Substance: LIRAGLUTIDE
     Indication: TYPE 2 DIABETES MELLITUS
     Dosage: ?          QUANTITY:1 INJECTION(S);?
     Route: 030
     Dates: start: 20170802, end: 20170831
  9. RAMIPRIL. [Concomitant]
     Active Substance: RAMIPRIL
  10. NARATRIPTAN [Concomitant]
     Active Substance: NARATRIPTAN HYDROCHLORIDE
  11. RANITIDINE. [Concomitant]
     Active Substance: RANITIDINE

REACTIONS (13)
  - Hallucination [None]
  - Impaired driving ability [None]
  - Dry mouth [None]
  - Nightmare [None]
  - Urinary tract infection [None]
  - Candida infection [None]
  - Blood glucose decreased [None]
  - Tremor [None]
  - Insomnia [None]
  - Respiratory disorder [None]
  - Arthralgia [None]
  - Vision blurred [None]
  - Pyrexia [None]

NARRATIVE: CASE EVENT DATE: 20170818
